FAERS Safety Report 7345340-1 (Version None)
Quarter: 2011Q1

REPORT INFORMATION
  Report Type: 
  Country: None (occurrence: None)
  Receive Date: 20110310
  Receipt Date: 20110225
  Transmission Date: 20110831
  Serious: Yes (Hospitalization)
  Sender: FDA-Public Use
  Company Number: AU-ELI_LILLY_AND_COMPANY-AU201102007350

PATIENT
  Sex: Female

DRUGS (1)
  1. FORTEO [Suspect]
     Indication: OSTEOPOROSIS
     Dosage: UNK, DAILY (1/D)
     Dates: start: 20100527, end: 20110217

REACTIONS (7)
  - URINARY RETENTION [None]
  - PAIN [None]
  - DIVERTICULITIS [None]
  - BACK PAIN [None]
  - NERVE INJURY [None]
  - SPINAL FRACTURE [None]
  - POSTURE ABNORMAL [None]
